FAERS Safety Report 9704012 (Version 2)
Quarter: 2014Q2

REPORT INFORMATION
  Report Type: Spontaneous
  Country: US (occurrence: US)
  Receive Date: 20131122
  Receipt Date: 20140422
  Transmission Date: 20141212
  Serious: Yes (Hospitalization, Other)
  Sender: FDA-Public Use
  Company Number: US-BAYER-2013-141843

PATIENT
  Age: 33 Year
  Sex: Female
  Weight: 77 kg

DRUGS (6)
  1. YASMIN [Suspect]
     Dosage: UNK
  2. OCELLA [Suspect]
     Dosage: UNK
  3. YAZ [Suspect]
  4. GIANVI [Suspect]
  5. ZOVIRAX [Concomitant]
  6. LIDOCAINE/PRILOCAINE [LIDOCAINE,PRILOCAINE] [Concomitant]

REACTIONS (7)
  - Cerebral artery embolism [None]
  - Cerebral infarction [None]
  - Cerebrovascular accident [None]
  - Injury [None]
  - Emotional distress [None]
  - Pain [None]
  - Pain [None]
